FAERS Safety Report 16054476 (Version 2)
Quarter: 2019Q2

REPORT INFORMATION
  Report Type: Spontaneous
  Country: MX (occurrence: MX)
  Receive Date: 20190309
  Receipt Date: 20190405
  Transmission Date: 20190711
  Serious: Yes (Death, Life-Threatening, Hospitalization, Disabling, Other)
  Sender: FDA-Public Use
  Company Number: MX-ABBVIE-19K-107-2695372-00

PATIENT
  Age: 50 Year
  Sex: Female
  Weight: 140 kg

DRUGS (6)
  1. OMEPRAZOLE. [Concomitant]
     Active Substance: OMEPRAZOLE
     Indication: PSORIASIS
     Route: 048
  2. ETORICOXIB. [Concomitant]
     Active Substance: ETORICOXIB
     Indication: PSORIASIS
     Route: 048
  3. HUMIRA [Suspect]
     Active Substance: ADALIMUMAB
     Indication: PSORIATIC ARTHROPATHY
     Route: 058
     Dates: start: 201808, end: 20190215
  4. FOLIC ACID. [Concomitant]
     Active Substance: FOLIC ACID
     Indication: PSORIASIS
     Route: 048
  5. METHOTREXATE. [Concomitant]
     Active Substance: METHOTREXATE
     Indication: PRODUCT USED FOR UNKNOWN INDICATION
     Route: 048
  6. PREDNISONE. [Concomitant]
     Active Substance: PREDNISONE
     Indication: PSORIASIS
     Route: 048

REACTIONS (9)
  - Brain death [Unknown]
  - Neurological decompensation [Fatal]
  - Headache [Unknown]
  - Confusional state [Unknown]
  - Progressive multifocal leukoencephalopathy [Fatal]
  - CSF protein increased [Fatal]
  - General physical health deterioration [Unknown]
  - Behaviour disorder [Fatal]
  - Urinary tract infection [Unknown]

NARRATIVE: CASE EVENT DATE: 201902
